FAERS Safety Report 5090197-5 (Version None)
Quarter: 2006Q3

REPORT INFORMATION
  Report Type: 
  Country: None (occurrence: None)
  Receive Date: 20060828
  Receipt Date: 20060825
  Transmission Date: 20061208
  Serious: Yes (Other)
  Sender: FDA-Public Use
  Company Number: BR-GLAXOSMITHKLINE-A0618127A

PATIENT
  Age: 6 Month
  Sex: Female

DRUGS (3)
  1. AMOXIL [Suspect]
     Dosage: 250MG PER DAY
     Route: 065
     Dates: start: 20060824, end: 20060825
  2. NOVALGINA [Suspect]
     Indication: DRUG USE FOR UNKNOWN INDICATION
     Dates: start: 20060824
  3. NIMESULIDE [Concomitant]
     Dates: start: 20060824

REACTIONS (2)
  - HYPOTHERMIA [None]
  - PALLOR [None]
